FAERS Safety Report 23375265 (Version 5)
Quarter: 2024Q2

REPORT INFORMATION
  Report Type: Spontaneous
  Country: US (occurrence: US)
  Receive Date: 20240106
  Receipt Date: 20240427
  Transmission Date: 20240715
  Serious: Yes (Death, Life-Threatening, Other)
  Sender: FDA-Public Use
  Company Number: US-UNITED THERAPEUTICS-UNT-2024-000220

PATIENT
  Age: 45 Year
  Sex: Female

DRUGS (3)
  1. TYVASO [Interacting]
     Active Substance: TREPROSTINIL
     Indication: Pulmonary arterial hypertension
     Dosage: 18 ?G, QID
     Dates: start: 20240103, end: 20240103
  2. ALBUTEROL [Suspect]
     Active Substance: ALBUTEROL
     Indication: Dyspnoea
     Dosage: 2 PUFFS
     Route: 065
  3. DUPIXENT [Interacting]
     Active Substance: DUPILUMAB
     Indication: Asthma
     Dosage: UNK
     Route: 065
     Dates: start: 202401, end: 202401

REACTIONS (10)
  - Respiratory failure [Fatal]
  - Cardiac arrest [Fatal]
  - Anaphylactic reaction [Fatal]
  - Angioedema [Fatal]
  - Pharyngeal swelling [Fatal]
  - Pulse absent [Unknown]
  - Drug interaction [Not Recovered/Not Resolved]
  - Syncope [Unknown]
  - Swollen tongue [Not Recovered/Not Resolved]
  - Therapy non-responder [Unknown]

NARRATIVE: CASE EVENT DATE: 20240103
